FAERS Safety Report 10668570 (Version 1)
Quarter: 2014Q4

REPORT INFORMATION
  Report Type: Spontaneous
  Country: US (occurrence: None)
  Receive Date: 20141217
  Receipt Date: 20141217
  Transmission Date: 20150529
  Serious: No
  Sender: FDA-Public Use
  Company Number: 2014CT000143

PATIENT
  Age: 59 Year
  Sex: Male
  Weight: 87.54 kg

DRUGS (3)
  1. AMLODIPINE [Concomitant]
     Active Substance: AMLODIPINE BESYLATE
  2. HYDROCHLOROTHIAZIDE. [Concomitant]
     Active Substance: HYDROCHLOROTHIAZIDE
  3. KORLYM [Suspect]
     Active Substance: MIFEPRISTONE
     Indication: CUSHING^S SYNDROME
     Route: 048
     Dates: start: 201406

REACTIONS (6)
  - Rash macular [None]
  - Cough [None]
  - Nausea [None]
  - Blood pressure decreased [None]
  - Dry throat [None]
  - Pharyngeal oedema [None]

NARRATIVE: CASE EVENT DATE: 2014
